FAERS Safety Report 25160757 (Version 1)
Quarter: 2025Q2

REPORT INFORMATION
  Report Type: Spontaneous
  Country: US (occurrence: US)
  Receive Date: 20250404
  Receipt Date: 20250404
  Transmission Date: 20250716
  Serious: No
  Sender: ELI LILLY AND CO
  Company Number: US-ELI_LILLY_AND_COMPANY-US202504003017

PATIENT
  Age: 60 Year
  Sex: Female

DRUGS (8)
  1. ZEPBOUND [Suspect]
     Active Substance: TIRZEPATIDE
     Indication: Weight control
     Route: 058
  2. ZEPBOUND [Suspect]
     Active Substance: TIRZEPATIDE
     Indication: Weight control
     Route: 058
  3. ZEPBOUND [Suspect]
     Active Substance: TIRZEPATIDE
     Indication: Weight control
     Route: 058
  4. ZEPBOUND [Suspect]
     Active Substance: TIRZEPATIDE
     Indication: Weight control
     Route: 058
  5. ZEPBOUND [Suspect]
     Active Substance: TIRZEPATIDE
     Indication: Thyroid disorder
  6. ZEPBOUND [Suspect]
     Active Substance: TIRZEPATIDE
     Indication: Thyroid disorder
  7. ZEPBOUND [Suspect]
     Active Substance: TIRZEPATIDE
     Indication: Thyroid disorder
  8. ZEPBOUND [Suspect]
     Active Substance: TIRZEPATIDE
     Indication: Thyroid disorder

REACTIONS (2)
  - Injury associated with device [Unknown]
  - Injection site bruising [Unknown]
